FAERS Safety Report 4664012-5 (Version None)
Quarter: 2005Q2

REPORT INFORMATION
  Report Type: 
  Country: None (occurrence: None)
  Receive Date: 20050516
  Receipt Date: 20050516
  Transmission Date: 20051028
  Serious: Yes (Hospitalization)
  Sender: FDA-Public Use
  Company Number: None

PATIENT
  Age: 79 Year
  Sex: Male

DRUGS (2)
  1. CLOPIDOGREL BISULFATE [Suspect]
     Indication: CEREBROVASCULAR ACCIDENT
     Dosage: 75 MG DAILY
     Dates: start: 20040301
  2. VITAMIN E [Suspect]
     Dosage: 400 UNITS DAILY

REACTIONS (1)
  - RECTAL HAEMORRHAGE [None]
